FAERS Safety Report 6301099-8 (Version None)
Quarter: 2009Q3

REPORT INFORMATION
  Report Type: 
  Country: None (occurrence: None)
  Receive Date: 20090807
  Receipt Date: 20090728
  Transmission Date: 20100115
  Serious: Yes (Other)
  Sender: FDA-Public Use
  Company Number: PHEH2009US04088

PATIENT
  Sex: Male

DRUGS (4)
  1. EXJADE [Suspect]
     Indication: SERUM FERRITIN INCREASED
     Dosage: 1500 MG, QD
     Route: 048
     Dates: start: 20080101
  2. EXJADE [Suspect]
     Dosage: 1000 MG, QD
     Route: 048
  3. EXJADE [Suspect]
     Dosage: 1000 MG, QOD
     Route: 048
     Dates: end: 20090401
  4. EXJADE [Suspect]
     Dosage: 500 MG DAILY
     Route: 048

REACTIONS (3)
  - ABDOMINAL PAIN [None]
  - DIARRHOEA [None]
  - HYPOTHYROIDISM [None]
